FAERS Safety Report 22781249 (Version 3)
Quarter: 2025Q1

REPORT INFORMATION
  Report Type: Spontaneous
  Country: US (occurrence: US)
  Receive Date: 20230803
  Receipt Date: 20250123
  Transmission Date: 20250408
  Serious: Yes (Death, Other)
  Sender: CHATTEM
  Company Number: US-OPELLA-2023OHG001471

PATIENT
  Age: 81 Year
  Sex: Male

DRUGS (1)
  1. MENTHOL\ZINC OXIDE [Suspect]
     Active Substance: MENTHOL\ZINC OXIDE
     Indication: Product used for unknown indication
     Route: 065

REACTIONS (1)
  - Mesothelioma [Fatal]
